FAERS Safety Report 4482122-2 (Version None)
Quarter: 2004Q4

REPORT INFORMATION
  Report Type: 
  Country: None (occurrence: None)
  Receive Date: 20041020
  Receipt Date: 20040204
  Transmission Date: 20050328
  Serious: Yes (Other)
  Sender: FDA-Public Use
  Company Number: EM2004-0506

PATIENT
  Age: 33 Year
  Sex: Female
  Weight: 75 kg

DRUGS (7)
  1. TOBI [Suspect]
     Indication: PSEUDOMONAS INFECTION
     Dosage: SEE IMAGE
     Route: 045
     Dates: start: 20031102, end: 20031122
  2. TOBI [Suspect]
     Indication: PSEUDOMONAS INFECTION
     Dosage: SEE IMAGE
     Route: 045
     Dates: start: 20031129, end: 20040106
  3. CIPROFLOXACIN [Concomitant]
  4. IPATROPIUM BROMIDE [Concomitant]
  5. AMINOFILIN [Concomitant]
  6. FLUTICASONE PROPIONATE [Concomitant]
  7. SALMETEROL (SALMETEROL) [Concomitant]

REACTIONS (4)
  - ALANINE AMINOTRANSFERASE INCREASED [None]
  - ASPARTATE AMINOTRANSFERASE INCREASED [None]
  - HEADACHE [None]
  - HEPATIC FUNCTION ABNORMAL [None]
